FAERS Safety Report 10588519 (Version 1)
Quarter: 2014Q4

REPORT INFORMATION
  Report Type: Spontaneous
  Country: MY (occurrence: MY)
  Receive Date: 20141117
  Receipt Date: 20141117
  Transmission Date: 20150529
  Serious: Yes (Death, Other)
  Sender: FDA-Public Use
  Company Number: MY-009507513-1411MYS006661

PATIENT
  Sex: Male
  Weight: 60 kg

DRUGS (2)
  1. COZAAR [Suspect]
     Active Substance: LOSARTAN POTASSIUM
     Indication: HYPERTENSION
     Dosage: 50 MG, OD
     Route: 048
     Dates: start: 200806, end: 200808
  2. METFORMIN [Concomitant]
     Active Substance: METFORMIN HYDROCHLORIDE
     Indication: DIABETES MELLITUS
     Dosage: 1000 MG, BD
     Route: 048
     Dates: end: 200808

REACTIONS (3)
  - Drug ineffective [Unknown]
  - Myocardial infarction [Fatal]
  - Blood pressure abnormal [Unknown]
